FAERS Safety Report 5591990-2 (Version None)
Quarter: 2008Q1

REPORT INFORMATION
  Report Type: 
  Country: None (occurrence: None)
  Receive Date: 20080115
  Receipt Date: 20080108
  Transmission Date: 20080703
  Serious: Yes (Hospitalization)
  Sender: FDA-Public Use
  Company Number: FR-ASTRAZENECA-2008CG00044

PATIENT
  Age: 910 Month
  Sex: Male

DRUGS (6)
  1. ZOLTUM [Suspect]
     Route: 048
  2. THALIDOMIDE LAPHAL [Suspect]
     Indication: MULTIPLE MYELOMA
     Route: 048
     Dates: start: 20070917
  3. ALKERAN [Suspect]
     Indication: MULTIPLE MYELOMA
     Route: 048
     Dates: start: 20070901
  4. PREDNISONE TAB [Suspect]
     Indication: MULTIPLE MYELOMA
     Route: 048
     Dates: start: 20070901
  5. CHRONADALATE [Suspect]
     Route: 048
  6. ALDACTAZIDE [Suspect]
     Route: 048

REACTIONS (2)
  - PSORIASIS [None]
  - TREMOR [None]
